FAERS Safety Report 17725597 (Version 2)
Quarter: 2020Q2

REPORT INFORMATION
  Report Type: Report from Study
  Country: US (occurrence: US)
  Receive Date: 20200429
  Receipt Date: 20200508
  Transmission Date: 20200714
  Serious: Yes (Hospitalization)
  Sender: FDA-Public Use
  Company Number: US-ACTELION-A-NJ2018-178177

PATIENT
  Age: 53 Year
  Sex: Female
  Weight: 68.03 kg

DRUGS (4)
  1. OPSUMIT [Suspect]
     Active Substance: MACITENTAN
     Indication: PULMONARY ARTERIAL HYPERTENSION
     Dosage: 10 MG, QD
     Route: 048
     Dates: end: 201903
  2. FLOLAN [Concomitant]
     Active Substance: EPOPROSTENOL SODIUM
  3. COUMADIN [Concomitant]
     Active Substance: WARFARIN SODIUM
  4. ADEMPAS [Suspect]
     Active Substance: RIOCIGUAT
     Indication: PRODUCT USED FOR UNKNOWN INDICATION
     Dosage: 2 MG, TID
     Route: 065

REACTIONS (14)
  - Nausea [Unknown]
  - Vomiting [Unknown]
  - Migraine [Recovered/Resolved]
  - Gastrointestinal haemorrhage [Unknown]
  - Dizziness [Unknown]
  - Nasopharyngitis [Unknown]
  - Diarrhoea [Unknown]
  - Haemoglobin decreased [Unknown]
  - Presyncope [Unknown]
  - Abdominal pain upper [Unknown]
  - Haematochezia [Unknown]
  - Dyspepsia [Unknown]
  - Haematemesis [Unknown]
  - Headache [Unknown]

NARRATIVE: CASE EVENT DATE: 201907
